FAERS Safety Report 7406892-6 (Version None)
Quarter: 2011Q2

REPORT INFORMATION
  Report Type: 
  Country: None (occurrence: None)
  Receive Date: 20110411
  Receipt Date: 20110303
  Transmission Date: 20111010
  Serious: Yes (Hospitalization, Disabling, Other)
  Sender: FDA-Public Use
  Company Number: US-SANOFI-AVENTIS-2011SA021087

PATIENT
  Age: 62 Year
  Sex: Male

DRUGS (1)
  1. LANTUS [Suspect]
     Indication: DIABETES MELLITUS
     Dosage: DOSE:80 UNIT(S)
     Route: 058

REACTIONS (16)
  - GANGRENE [None]
  - STAPHYLOCOCCAL INFECTION [None]
  - NEUROPATHY PERIPHERAL [None]
  - CARDIAC FAILURE CONGESTIVE [None]
  - DYSPNOEA [None]
  - VISION BLURRED [None]
  - INCISION SITE HAEMORRHAGE [None]
  - HYPERGLYCAEMIA [None]
  - DRUG DOSE OMISSION [None]
  - EYE DISORDER [None]
  - PYREXIA [None]
  - ARTERIAL OCCLUSIVE DISEASE [None]
  - CARPAL TUNNEL SYNDROME [None]
  - VASCULAR GRAFT [None]
  - ACNE [None]
  - RASH [None]
